FAERS Safety Report 9981207 (Version 1)
Quarter: 2014Q1

REPORT INFORMATION
  Report Type: Spontaneous
  Country: US (occurrence: US)
  Receive Date: 20140307
  Receipt Date: 20140307
  Transmission Date: 20141002
  Serious: Yes (Hospitalization, Other)
  Sender: FDA-Public Use
  Company Number: 2014SP001177

PATIENT
  Age: 66 Year
  Sex: Male
  Weight: 81.65 kg

DRUGS (19)
  1. FLUOROURACIL [Suspect]
     Indication: PANCREATIC CARCINOMA
     Route: 042
     Dates: start: 20131028
  2. FLUOROURACIL [Suspect]
     Indication: PANCREATIC CARCINOMA
     Route: 042
     Dates: start: 20131223
  3. FLUOROURACIL [Suspect]
     Indication: PANCREATIC CARCINOMA
     Route: 042
     Dates: start: 20131223
  4. IRINOTECAN [Suspect]
     Indication: PANCREATIC CARCINOMA
     Route: 042
     Dates: start: 20131028
  5. IRINOTECAN [Suspect]
     Indication: PANCREATIC CARCINOMA
     Route: 042
     Dates: start: 20131223
  6. OXALIPLATIN [Suspect]
     Indication: PANCREATIC CARCINOMA
     Route: 042
     Dates: start: 20131028
  7. OXALIPLATIN [Suspect]
     Indication: PANCREATIC CARCINOMA
     Route: 042
     Dates: start: 20131223
  8. FOLINIC ACID [Suspect]
     Indication: PANCREATIC CARCINOMA
     Dates: start: 20131028
  9. FOLINIC ACID [Suspect]
     Indication: PANCREATIC CARCINOMA
     Route: 042
     Dates: start: 20131223
  10. ACETAMINOPHEN [Concomitant]
  11. DORZOLAMIDE [Concomitant]
  12. OMEPRAZOLE [Concomitant]
  13. TIMOLOL [Concomitant]
  14. TRAVATAN [Concomitant]
  15. HYDROCODONE [Concomitant]
  16. APAP [Concomitant]
  17. NEUPOGEN [Concomitant]
  18. APREPITANT [Concomitant]
  19. OXYCODONE [Concomitant]

REACTIONS (4)
  - Cardiac failure [Unknown]
  - Ascites [Recovered/Resolved]
  - Dyspnoea [Recovered/Resolved]
  - Leukocytosis [Unknown]
